FAERS Safety Report 4290488-1 (Version None)
Quarter: 2004Q1

REPORT INFORMATION
  Report Type: 
  Country: None (occurrence: None)
  Receive Date: 20040126
  Receipt Date: 20030905
  Transmission Date: 20041129
  Serious: No
  Sender: FDA-Public Use
  Company Number: USA030434100

PATIENT
  Age: 76 Year
  Sex: Female
  Weight: 42 kg

DRUGS (11)
  1. FORTERO [Concomitant]
     Indication: OSTEOPOROSIS
     Dates: start: 20030410
  2. BACLOFEN [Concomitant]
  3. CLONAZEPAM [Concomitant]
  4. HYDROCODONE [Concomitant]
  5. NEXIUM [Concomitant]
  6. PRAVACHOL [Concomitant]
  7. SYNTHROID [Concomitant]
  8. TEMAZEPAM [Concomitant]
  9. FOSAMAX [Concomitant]
  10. ACTONEL [Concomitant]
  11. FORTERO [Suspect]

REACTIONS (5)
  - BONE PAIN [None]
  - CYSTITIS [None]
  - DIZZINESS [None]
  - HEART RATE INCREASED [None]
  - NAUSEA [None]
